FAERS Safety Report 20333461 (Version 2)
Quarter: 2022Q1

REPORT INFORMATION
  Report Type: Report from Study
  Country: CH (occurrence: CH)
  Receive Date: 20220113
  Receipt Date: 20220121
  Transmission Date: 20220423
  Serious: Yes (Hospitalization)
  Sender: FDA-Public Use
  Company Number: CH-BRISTOL-MYERS SQUIBB COMPANY-BMS-2022-002765

PATIENT
  Age: 73 Year
  Sex: Male
  Weight: 76 kg

DRUGS (31)
  1. NIVOLUMAB [Suspect]
     Active Substance: NIVOLUMAB
     Indication: Non-small cell lung cancer
     Dosage: 360 MILLIGRAM
     Route: 042
     Dates: start: 20210820
  2. CARBOPLATIN [Suspect]
     Active Substance: CARBOPLATIN
     Indication: Non-small cell lung cancer
     Dosage: 152 MILLIGRAM
     Route: 065
     Dates: start: 20210820
  3. PACLITAXEL [Suspect]
     Active Substance: PACLITAXEL
     Indication: Non-small cell lung cancer
     Dosage: 96 MILLIGRAM
     Route: 065
     Dates: start: 20210820
  4. ESOMEPRAZOLE [Concomitant]
     Active Substance: ESOMEPRAZOLE
     Indication: Product used for unknown indication
     Dosage: 40 MILLIGRAM, BID
     Route: 048
     Dates: start: 20210922
  5. METAMIZOL [Concomitant]
     Active Substance: METAMIZOLE SODIUM
     Indication: Product used for unknown indication
     Dosage: 1 DOSAGE FORM = 40 UNITS NOS QID
     Route: 048
     Dates: start: 20210922
  6. VITAMIN B COMPLEX [Concomitant]
     Active Substance: CYANOCOBALAMIN\DEXPANTHENOL\NIACINAMIDE\PYRIDOXINE HYDROCHLORIDE\RIBOFLAVIN 5^-PHOSPHATE SODIUM\THIA
     Indication: Product used for unknown indication
     Dosage: 1 DOSAGE FORM= 1 UNITS NOS, DAILY PER DAY
     Route: 048
     Dates: start: 20210922
  7. THIAMINE [Concomitant]
     Active Substance: THIAMINE
     Indication: Product used for unknown indication
     Dosage: 300 MILLIGRAM, DAILY; PER DAY
     Route: 048
     Dates: start: 20210922
  8. MINERALS\VITAMINS [Concomitant]
     Active Substance: MINERALS\VITAMINS
     Indication: Product used for unknown indication
     Dosage: 1 DOSAGE FORM= 1 UNITS NOS DAILY; PER DAY
     Route: 048
     Dates: start: 20210923
  9. LOPERAMIDE [Concomitant]
     Active Substance: LOPERAMIDE
     Indication: Product used for unknown indication
     Dosage: 2 MILLIGRAM, AS NEEDED
     Route: 048
     Dates: start: 20210920
  10. DIPHENHYDRAMINE HYDROCHLORIDE [Concomitant]
     Active Substance: DIPHENHYDRAMINE HYDROCHLORIDE
     Indication: Product used for unknown indication
     Dosage: 1 DOSAGE FORM = 20 UNITS NOS,  AS NEEDED
     Route: 048
     Dates: start: 20210920
  11. METOCLOPRAMIDE [Concomitant]
     Active Substance: METOCLOPRAMIDE
     Indication: Product used for unknown indication
     Dosage: 1 DOSAGE FORM= 30 UNITS NOS, AS NEEDED
     Route: 048
     Dates: start: 20210920
  12. ONDANSETRON [Concomitant]
     Active Substance: ONDANSETRON
     Indication: Product used for unknown indication
     Dosage: 8 MILLIGRAM, AS NEEDED
     Route: 042
     Dates: start: 20210920
  13. TRAZODON HYDROCHLORIDE ACCORD [Concomitant]
     Indication: Product used for unknown indication
     Dosage: 150 MILLIGRAM, DAILY; PER DAY
     Route: 048
     Dates: start: 20210611
  14. LACTULOSE [Concomitant]
     Active Substance: LACTULOSE
     Indication: Product used for unknown indication
     Dosage: 1 DOSAGE FORM = 10 UNITS NOS, AS NEEDED
     Route: 048
     Dates: start: 20210921
  15. BISACODYL [Concomitant]
     Active Substance: BISACODYL
     Indication: Product used for unknown indication
     Dosage: 10 MILLIGRAM, AS NEEDED
     Route: 054
     Dates: start: 20210920
  16. GLYCERIN [Concomitant]
     Active Substance: GLYCERIN
     Indication: Product used for unknown indication
     Dosage: 1 DOSAGE FORM = 1 UNITS NOS, AS NEEDED
     Route: 054
     Dates: start: 20210920
  17. ACETAMINOPHEN [Concomitant]
     Active Substance: ACETAMINOPHEN
     Indication: Product used for unknown indication
     Dosage: 1 GRAM, AS NEEDED
     Route: 048
     Dates: start: 20210917
  18. MORPHINE [Concomitant]
     Active Substance: MORPHINE
     Indication: Product used for unknown indication
     Dosage: 1 DOSAGE FORM = 5 UNITS NOS, AS NEEDED
     Route: 048
     Dates: start: 20210920
  19. MORPHINE [Concomitant]
     Active Substance: MORPHINE
     Dosage: 1 MILLIGRAM, AS NEEDED
     Route: 042
     Dates: start: 20210920
  20. ALUMINUM HYDROXIDE\MAGNESIUM HYDROXIDE [Concomitant]
     Active Substance: ALUMINUM HYDROXIDE\MAGNESIUM HYDROXIDE
     Indication: Product used for unknown indication
     Dosage: 1 DOSAGE FORM= 10 UNITS NOS, AS NEEDED
     Route: 048
     Dates: start: 20210920
  21. LORAZEPAM [Concomitant]
     Active Substance: LORAZEPAM
     Indication: Product used for unknown indication
     Dosage: 1 MILLIGRAM, AS NEEDED
     Route: 048
     Dates: start: 20210920
  22. ALBUTEROL SULFATE\IPRATROPIUM BROMIDE [Concomitant]
     Active Substance: ALBUTEROL SULFATE\IPRATROPIUM BROMIDE
     Indication: Product used for unknown indication
     Dosage: 1 DOSAGE FORM= 1 UNITS NOS TID
     Route: 055
     Dates: start: 20210903
  23. PREDNISONE [Concomitant]
     Active Substance: PREDNISONE
     Indication: Product used for unknown indication
     Dosage: 50 MILLIGRAM, DAILY; PER DAY
     Route: 048
     Dates: start: 20211118
  24. SULFAMETHOXAZOLE [Concomitant]
     Active Substance: SULFAMETHOXAZOLE
     Indication: Prophylaxis
     Dosage: 800 MILLIGRAM, TIS; THREE TIMES A WEEK
     Route: 048
     Dates: start: 20211118
  25. TRIMETHOPRIM [Concomitant]
     Active Substance: TRIMETHOPRIM
     Indication: Prophylaxis
     Dosage: 160 MILLIGRAM, TIS; THREE TIMES A WEEK
     Route: 048
     Dates: start: 20211118
  26. PANTOPRAZOLE [Concomitant]
     Active Substance: PANTOPRAZOLE
     Indication: Prophylaxis
     Dosage: 40 MILLIGRAM, DAILY; PER DAY
     Route: 048
     Dates: start: 20211118
  27. POLYETHYLENE GLYCOLS [Concomitant]
     Active Substance: POLYETHYLENE GLYCOLS
     Indication: Product used for unknown indication
     Dosage: 1 DOSAGE FORM = 1 UNITS NOS,  AS NEEDED
     Route: 048
     Dates: start: 20210903
  28. SODIUM PICOSULFATE [Concomitant]
     Active Substance: SODIUM PICOSULFATE
     Indication: Product used for unknown indication
     Dosage: 1 DOSAGE FORM = 20 UNITS NOS, AS NEEDED
     Route: 048
     Dates: start: 20210903
  29. ESCITALOPRAM [Concomitant]
     Active Substance: ESCITALOPRAM OXALATE
     Indication: Product used for unknown indication
     Dosage: 20 MILLIGRAM, DAILY; PER DAY
     Route: 048
     Dates: start: 20210922
  30. CODEINE PHOSPHATE [Concomitant]
     Active Substance: CODEINE PHOSPHATE
     Indication: Product used for unknown indication
     Dosage: 50 MILLIGRAM, BD; TWICE PER DAY
     Route: 048
     Dates: start: 20210921
  31. MODERNA COVID-19 VACCINE [Concomitant]
     Active Substance: ELASOMERAN
     Indication: Prophylaxis
     Dosage: UNK
     Route: 030
     Dates: start: 20210708

REACTIONS (1)
  - Oesophagitis [Recovered/Resolved]

NARRATIVE: CASE EVENT DATE: 20220107
